FAERS Safety Report 12771189 (Version 1)
Quarter: 2016Q3

REPORT INFORMATION
  Report Type: Spontaneous
  Country: US (occurrence: US)
  Receive Date: 20160921
  Receipt Date: 20160921
  Transmission Date: 20161109
  Serious: Yes (Hospitalization)
  Sender: FDA-Public Use
  Company Number: None

PATIENT
  Age: 48 Year
  Sex: Female
  Weight: 53.1 kg

DRUGS (5)
  1. MARSHALLOW ROOT [Concomitant]
  2. ALOE VERA [Concomitant]
     Active Substance: ALOE VERA LEAF
  3. AZITHROMYICIN [Suspect]
     Active Substance: AZITHROMYCIN ANHYDROUS
     Indication: PNEUMONIA BACTERIAL
     Route: 048
  4. PROBIOTIC [Concomitant]
     Active Substance: PROBIOTICS NOS
  5. COLOSTRUM HUMAN [Concomitant]
     Active Substance: HUMAN COLOSTRUM

REACTIONS (3)
  - Gastrooesophageal reflux disease [None]
  - Oesophageal ulcer [None]
  - Gastrointestinal inflammation [None]
